FAERS Safety Report 24357631 (Version 1)
Quarter: 2024Q3

REPORT INFORMATION
  Report Type: Spontaneous
  Country: US (occurrence: None)
  Receive Date: 20240923
  Receipt Date: 20240923
  Transmission Date: 20241017
  Serious: Yes (Disabling, Other)
  Sender: Public
  Company Number: None

PATIENT
  Age: 49 Year
  Sex: Female
  Weight: 73.8 kg

DRUGS (1)
  1. TURALIO [Suspect]
     Active Substance: PEXIDARTINIB HYDROCHLORIDE
     Indication: Giant cell tumour of tendon sheath

REACTIONS (14)
  - Gamma-glutamyltransferase increased [None]
  - Hepatic enzyme increased [None]
  - Therapy cessation [None]
  - Chromaturia [None]
  - Hair colour changes [None]
  - Pruritus [None]
  - Abdominal discomfort [None]
  - Malaise [None]
  - Nausea [None]
  - Diarrhoea [None]
  - Lethargy [None]
  - Asthenia [None]
  - Feeling hot [None]
  - Drug-induced liver injury [None]

NARRATIVE: CASE EVENT DATE: 20240626
